FAERS Safety Report 7714766-6 (Version None)
Quarter: 2011Q3

REPORT INFORMATION
  Report Type: 
  Country: None (occurrence: None)
  Receive Date: 20110829
  Receipt Date: 20110824
  Transmission Date: 20111222
  Serious: No
  Sender: FDA-Public Use
  Company Number: JP-ABBOTT-11P-087-0841126-00

PATIENT
  Sex: Female

DRUGS (4)
  1. HUMIRA [Suspect]
     Indication: RHEUMATOID ARTHRITIS
     Route: 058
     Dates: start: 20110708, end: 20110708
  2. METHOTREXATE [Concomitant]
     Dates: start: 20110616, end: 20110722
  3. METHOTREXATE [Concomitant]
     Dates: start: 20110804
  4. METHOTREXATE [Concomitant]
     Indication: RHEUMATOID ARTHRITIS
     Route: 048
     Dates: start: 20110526, end: 20110610

REACTIONS (2)
  - COUGH [None]
  - PLEURISY [None]
